FAERS Safety Report 10378465 (Version 1)
Quarter: 2014Q3

REPORT INFORMATION
  Report Type: Spontaneous
  Country: GB (occurrence: GB)
  Receive Date: 20140812
  Receipt Date: 20140812
  Transmission Date: 20150326
  Serious: Yes (Life-Threatening, Other)
  Sender: FDA-Public Use
  Company Number: GB-MYLANLABS-2014M1001086

PATIENT

DRUGS (4)
  1. BUPIVACAINE [Suspect]
     Active Substance: BUPIVACAINE
     Dosage: 15 ML (CONC: 0.1%) BOLUS WITH 30 MIN. LOCK OUT INTERVAL
     Route: 008
  2. FENTANYL. [Suspect]
     Active Substance: FENTANYL
     Dosage: 2 MICROGM/ML BOLUS WITH 30 MIN. LOCK OUT INTERVAL
     Route: 008
  3. LIDOCAINE. [Suspect]
     Active Substance: LIDOCAINE
     Dosage: 10ML (CONC: 2%) OVER 5 MIN.
     Route: 008
  4. LEVOBUPIVACAINE [Suspect]
     Active Substance: LEVOBUPIVACAINE
     Dosage: 10ML (CONC: 0.5%) OVER 5 MIN.
     Route: 008

REACTIONS (4)
  - Cardiac arrest [Recovered/Resolved]
  - Anaesthetic complication cardiac [Recovered/Resolved]
  - Maternal exposure during pregnancy [Unknown]
  - Procedural headache [Recovered/Resolved]
